FAERS Safety Report 4370726-7 (Version None)
Quarter: 2004Q2

REPORT INFORMATION
  Report Type: 
  Country: None (occurrence: None)
  Receive Date: 20040602
  Receipt Date: 20040602
  Transmission Date: 20050107
  Serious: No
  Sender: FDA-Public Use
  Company Number: None

PATIENT
  Sex: Male

DRUGS (5)
  1. CLOZAPINE [Suspect]
     Indication: PSYCHOTIC DISORDER
     Dosage: 50 MG DAILY ORAL
     Route: 048
     Dates: start: 20040420, end: 20040427
  2. FLUVOXAMINE [Suspect]
     Indication: AGITATION
     Dosage: 100 MG BID ORAL
     Route: 048
  3. OLANZAPINE [Concomitant]
  4. HALOPERIDOL [Concomitant]
  5. SIMVASTATIN [Concomitant]

REACTIONS (1)
  - DRUG LEVEL INCREASED [None]
